FAERS Safety Report 5219138-4 (Version None)
Quarter: 2007Q1

REPORT INFORMATION
  Report Type: 
  Country: None (occurrence: None)
  Receive Date: 20070125
  Receipt Date: 20070118
  Transmission Date: 20070707
  Serious: Yes (Hospitalization)
  Sender: FDA-Public Use
  Company Number: JP-JNJFOC-20060504058

PATIENT
  Sex: Female
  Weight: 42 kg

DRUGS (16)
  1. REMICADE [Suspect]
     Route: 042
  2. REMICADE [Suspect]
     Dosage: 3 INFUSIONS
     Route: 042
  3. REMICADE [Suspect]
     Dosage: 3 INFUSIONS
     Route: 042
  4. REMICADE [Suspect]
     Dosage: 3 INFUSIONS
     Route: 042
  5. REMICADE [Suspect]
     Indication: RHEUMATOID ARTHRITIS
     Dosage: 4 INFUSIONS ON UNKNOWN DATES
     Route: 042
  6. RHEUMATREX [Suspect]
     Route: 048
  7. RHEUMATREX [Suspect]
     Indication: RHEUMATOID ARTHRITIS
     Route: 048
  8. PREDNISOLONE [Suspect]
     Indication: RHEUMATOID ARTHRITIS
     Route: 048
  9. FOLIAMIN [Concomitant]
     Indication: PROPHYLAXIS
     Route: 048
  10. ALFAROL [Concomitant]
     Indication: OSTEOPOROSIS
     Dosage: DOSE= 0.5 RG
     Route: 048
  11. BENET [Concomitant]
     Indication: OSTEOPOROSIS
     Route: 048
  12. GASTER D [Concomitant]
     Indication: GASTRIC ULCER
     Route: 048
  13. BUFFERIN [Concomitant]
     Indication: CEREBRAL THROMBOSIS
     Route: 048
  14. NITROGLYCERIN [Concomitant]
     Indication: ANGINA PECTORIS
  15. MEDICAL OXYGEN [Concomitant]
     Route: 055
  16. MEDICAL OXYGEN [Concomitant]
     Indication: ANGINA PECTORIS
     Route: 055

REACTIONS (1)
  - PNEUMOCYSTIS JIROVECI PNEUMONIA [None]
